FAERS Safety Report 9411173 (Version 1)
Quarter: 2013Q3

REPORT INFORMATION
  Report Type: Spontaneous
  Country: CA (occurrence: CA)
  Receive Date: 20130721
  Receipt Date: 20130721
  Transmission Date: 20140515
  Serious: Yes (Other)
  Sender: FDA-Public Use
  Company Number: PHHY2013CA077038

PATIENT
  Age: 74 Year
  Sex: Male
  Weight: 63 kg

DRUGS (12)
  1. ZOMETA [Suspect]
     Dosage: 4 MG, EVERY 4 WEEKS
     Route: 042
  2. ZYTIGA [Concomitant]
     Dosage: UNK UKN, UNK
  3. VENTOLIN//SALBUTAMOL [Concomitant]
     Dosage: UNK UKN, UNK
  4. SENOKOT//SENNA ALEXANDRINA [Concomitant]
     Dosage: UNK UKN, UNK
  5. PREDNISONE [Concomitant]
     Dosage: UNK UKN, UNK
  6. PERIDEX [Concomitant]
     Dosage: UNK UKN, UNK
  7. PANTOLOC//PANTOPRAZOLE SODIUM SESQUIHYDRATE [Concomitant]
     Dosage: UNK UKN, UNK
  8. NORVASC [Concomitant]
     Dosage: UNK UKN, UNK
  9. K-DUR [Concomitant]
     Dosage: UNK UKN, UNK
  10. HUMALOG [Concomitant]
     Dosage: UNK UKN, UNK
  11. CALCIUM + VITAMIN D [Concomitant]
     Dosage: UNK UKN, UNK
  12. ASA [Concomitant]
     Dosage: UNK UKN, UNK

REACTIONS (2)
  - Osteomyelitis [Unknown]
  - Osteonecrosis of jaw [Unknown]
